FAERS Safety Report 21315182 (Version 1)
Quarter: 2022Q3

REPORT INFORMATION
  Report Type: Spontaneous
  Country: CA (occurrence: CA)
  Receive Date: 20220909
  Receipt Date: 20220909
  Transmission Date: 20221027
  Serious: Yes (Other)
  Sender: FDA-Public Use
  Company Number: CA-MYLANLABS-2022M1092693

PATIENT
  Sex: Female

DRUGS (24)
  1. CLOZAPINE [Interacting]
     Active Substance: CLOZAPINE
     Indication: Product used for unknown indication
     Dosage: 3 DOSAGE FORM, QD
     Route: 065
  2. CLOZAPINE [Interacting]
     Active Substance: CLOZAPINE
     Dosage: 1 DOSAGE FORM, QD
     Route: 065
  3. ARIPIPRAZOLE [Interacting]
     Active Substance: ARIPIPRAZOLE
     Indication: Product used for unknown indication
     Dosage: UNK
     Route: 065
  4. VALPROIC ACID [Interacting]
     Active Substance: VALPROIC ACID
     Indication: Product used for unknown indication
     Dosage: 1 DOSAGE FORM, BID
     Route: 065
  5. AMLODIPINE [Interacting]
     Active Substance: AMLODIPINE BESYLATE
     Indication: Product used for unknown indication
     Dosage: 1 DOSAGE FORM, QD, 1 DF 1X
     Route: 065
  6. INFLUENZA VIRUS VACCINE [Interacting]
     Active Substance: INFLUENZA VIRUS VACCINE
     Indication: Product used for unknown indication
     Dosage: UNK
     Route: 065
  7. ZOPICLONE [Interacting]
     Active Substance: ZOPICLONE
     Indication: Insomnia
     Dosage: 1 DOSAGE FORM, QD, 1.0 DF, 1X
     Route: 065
  8. RANITIDINE HYDROCHLORIDE [Interacting]
     Active Substance: RANITIDINE HYDROCHLORIDE
     Indication: Product used for unknown indication
     Dosage: 1 DOSAGE FORM, BID
     Route: 065
  9. RANITIDINE [Interacting]
     Active Substance: RANITIDINE
     Indication: Product used for unknown indication
     Dosage: 150 MILLIGRAM, BID
     Route: 065
  10. OLANZAPINE [Interacting]
     Active Substance: OLANZAPINE
     Indication: Mood altered
     Dosage: 1 DOSAGE FORM
     Route: 065
  11. OLANZAPINE [Interacting]
     Active Substance: OLANZAPINE
     Dosage: 1 DOSAGE FORM
     Route: 065
  12. LEVOTHYROXINE SODIUM [Interacting]
     Active Substance: LEVOTHYROXINE SODIUM
     Indication: Product used for unknown indication
     Dosage: 1 DOSAGE FORM
     Route: 065
  13. CLOTRIMAZOLE [Interacting]
     Active Substance: CLOTRIMAZOLE
     Indication: Rash
     Dosage: 1 DOSAGE FORM, BID
     Route: 065
  14. ESTRADIOL [Interacting]
     Active Substance: ESTRADIOL
     Indication: Product used for unknown indication
     Dosage: 1 DOSAGE FORM
     Route: 067
  15. ACETAMINOPHEN [Interacting]
     Active Substance: ACETAMINOPHEN
     Indication: Pain
     Dosage: 2 DOSAGE FORM
     Route: 065
  16. ACETAMINOPHEN [Interacting]
     Active Substance: ACETAMINOPHEN
     Indication: Pyrexia
  17. ACETAMINOPHEN AND CAFFEINE [Interacting]
     Active Substance: ACETAMINOPHEN\CAFFEINE
     Indication: Pyrexia
     Dosage: 2 DOSAGE FORM
     Route: 065
  18. ACETAMINOPHEN AND CAFFEINE [Interacting]
     Active Substance: ACETAMINOPHEN\CAFFEINE
     Indication: Pain
  19. BREXPIPRAZOLE [Interacting]
     Active Substance: BREXPIPRAZOLE
     Indication: Product used for unknown indication
     Dosage: UNK
     Route: 065
  20. ALUMINUM HYDROXIDE\DIMETHICONE\MAGNESIUM HYDROXIDE [Interacting]
     Active Substance: ALUMINUM HYDROXIDE\DIMETHICONE\MAGNESIUM HYDROXIDE
     Indication: Abdominal discomfort
     Dosage: 30 UNK
     Route: 065
  21. CHOLECALCIFEROL [Interacting]
     Active Substance: CHOLECALCIFEROL
     Indication: Product used for unknown indication
     Dosage: UNK
     Route: 065
  22. PREMARIN [Suspect]
     Active Substance: ESTROGENS, CONJUGATED
     Indication: Product used for unknown indication
     Dosage: UNK
     Route: 065
  23. REXULTI [Interacting]
     Active Substance: BREXPIPRAZOLE
     Indication: Product used for unknown indication
     Dosage: UNK
     Route: 065
  24. VITAMIN D3 [Interacting]
     Active Substance: CHOLECALCIFEROL
     Indication: Product used for unknown indication
     Dosage: UNK
     Route: 065

REACTIONS (4)
  - Electrocardiogram QT prolonged [Unknown]
  - Schizoaffective disorder [Unknown]
  - Drug level increased [Unknown]
  - Drug interaction [Unknown]
